FAERS Safety Report 4423501-9 (Version None)
Quarter: 2004Q3

REPORT INFORMATION
  Report Type: 
  Country: None (occurrence: None)
  Receive Date: 20040806
  Receipt Date: 20040730
  Transmission Date: 20050211
  Serious: Yes (Disabling, Other)
  Sender: FDA-Public Use
  Company Number: 200410405BVD

PATIENT
  Age: 42 Year
  Sex: Male
  Weight: 82 kg

DRUGS (4)
  1. CIPROFLOXACIN [Suspect]
     Indication: DIVERTICULITIS
     Dosage: 1000 MG, TOTAL DAILY, ORAL; SEE IMAGE
     Route: 048
     Dates: start: 20030707, end: 20030717
  2. CIPROFLOXACIN [Suspect]
     Indication: DIVERTICULITIS
     Dosage: 1000 MG, TOTAL DAILY, ORAL; SEE IMAGE
     Route: 048
     Dates: start: 20030829, end: 20030907
  3. CLONT [Concomitant]
  4. TAZOBAC [Concomitant]

REACTIONS (9)
  - ABDOMINAL INFECTION [None]
  - ACQUIRED DIAPHRAGMATIC EVENTRATION [None]
  - COMPUTERISED TOMOGRAM ABNORMAL [None]
  - DIAPHRAGMATIC DISORDER [None]
  - DIVERTICULUM [None]
  - DYSPNOEA [None]
  - HYPOVENTILATION [None]
  - LIVER DISORDER [None]
  - PARESIS [None]
